FAERS Safety Report 5940967-3 (Version None)
Quarter: 2008Q4

REPORT INFORMATION
  Report Type: 
  Country: None (occurrence: None)
  Receive Date: 20081104
  Receipt Date: 20081028
  Transmission Date: 20090506
  Serious: Yes (Other)
  Sender: FDA-Public Use
  Company Number: PHHY2008CR26243

PATIENT
  Age: 66 Year
  Sex: Female

DRUGS (10)
  1. DIOVAN HCT [Suspect]
     Dosage: 160/12.5 MG PER DAY
     Route: 048
  2. ALUMINUM HYDROXIDE GEL [Concomitant]
  3. BUSCAPINA [Concomitant]
  4. DIGOXIN [Concomitant]
     Dosage: ONE TABLET PER DAY
     Route: 048
  5. FAMOTIDINE [Concomitant]
  6. METHYLDOPA [Concomitant]
     Dosage: 250 MG ORAL PER DAY
     Route: 048
  7. FUROSEMIDE [Concomitant]
     Dosage: 40 MG PER DAY
     Route: 048
  8. ATENOLOL [Concomitant]
     Dosage: 50 MG PER DAY
     Route: 048
  9. METOCLOPRAMIDE [Concomitant]
     Dosage: 10 MG PER DAY
     Route: 048
  10. OMEPRAZOLE [Concomitant]
     Dosage: 10 MG PER DAY
     Route: 048

REACTIONS (4)
  - CONGESTIVE CARDIOMYOPATHY [None]
  - DYSPNOEA [None]
  - FEELING ABNORMAL [None]
  - INFARCTION [None]
